FAERS Safety Report 20130792 (Version 1)
Quarter: 2021Q4

REPORT INFORMATION
  Report Type: Other
  Country: None (occurrence: US)
  Receive Date: 20211130
  Receipt Date: 20211130
  Transmission Date: 20220304
  Serious: Yes (Hospitalization)
  Sender: FDA-Public Use
  Company Number: US-B.Braun Medical Inc.-2122480

PATIENT
  Age: 44 Year
  Sex: Male

DRUGS (1)
  1. SODIUM CHLORIDE [Suspect]
     Active Substance: SODIUM CHLORIDE

REACTIONS (1)
  - Osmotic demyelination syndrome [Recovering/Resolving]
